FAERS Safety Report 19388549 (Version 1)
Quarter: 2021Q2

REPORT INFORMATION
  Report Type: Spontaneous
  Country: US (occurrence: US)
  Receive Date: 20210607
  Receipt Date: 20210607
  Transmission Date: 20210717
  Serious: Yes (Disabling)
  Sender: FDA-Public Use
  Company Number: None

PATIENT
  Age: 52 Year
  Sex: Female
  Weight: 47.7 kg

DRUGS (15)
  1. LEVOTHYROXINE. [Concomitant]
     Active Substance: LEVOTHYROXINE
  2. TYLENOL EXTRA STRENGTH [Concomitant]
     Active Substance: ACETAMINOPHEN
  3. MULTIVITAMIN [Concomitant]
     Active Substance: VITAMINS
  4. FLOVENT HFA [Concomitant]
     Active Substance: FLUTICASONE PROPIONATE
  5. PRO AIR INHALER [Concomitant]
  6. CLARITIN [Concomitant]
     Active Substance: LORATADINE
  7. BOTOX [Concomitant]
     Active Substance: ONABOTULINUMTOXINA
  8. MAGNESIUM [Concomitant]
     Active Substance: MAGNESIUM
  9. EVENING PRIMROSE OIL [Concomitant]
     Active Substance: EVENING PRIMROSE OIL\HERBALS
  10. VITAMIN B12 [Concomitant]
     Active Substance: CYANOCOBALAMIN
  11. EMGALITY [Suspect]
     Active Substance: GALCANEZUMAB-GNLM
     Indication: MIGRAINE
     Dates: start: 20210304, end: 20210503
  12. PEPCID [Concomitant]
     Active Substance: FAMOTIDINE
  13. VITAMIN D [Concomitant]
     Active Substance: VITAMIN D NOS
  14. NURTEC ODT [Concomitant]
     Active Substance: RIMEGEPANT SULFATE
  15. CALCIUM [Concomitant]
     Active Substance: CALCIUM

REACTIONS (4)
  - Constipation [None]
  - Adnexa uteri pain [None]
  - Alopecia [None]
  - Abdominal distension [None]

NARRATIVE: CASE EVENT DATE: 20210510
